FAERS Safety Report 19423185 (Version 1)
Quarter: 2021Q2

REPORT INFORMATION
  Report Type: Spontaneous
  Country: US (occurrence: US)
  Receive Date: 20210616
  Receipt Date: 20210616
  Transmission Date: 20210717
  Serious: No
  Sender: FDA-Public Use
  Company Number: US-SIGMAPHARM LABORATORIES, LLC-2021SIG00024

PATIENT
  Sex: Female
  Weight: 92.99 kg

DRUGS (2)
  1. ASENAPINE. [Suspect]
     Active Substance: ASENAPINE
     Indication: SLEEP DISORDER
     Dosage: 5 MG, 2X/DAY
     Route: 060
     Dates: start: 202103, end: 2021
  2. ASENAPINE. [Suspect]
     Active Substance: ASENAPINE
     Indication: ANXIETY
     Dosage: 5 MG, 2X/DAY
     Route: 048
     Dates: start: 202103

REACTIONS (7)
  - Drug ineffective for unapproved indication [Not Recovered/Not Resolved]
  - Product physical issue [Not Recovered/Not Resolved]
  - Wrong technique in product usage process [Not Recovered/Not Resolved]
  - Product solubility abnormal [Not Recovered/Not Resolved]
  - Product substitution issue [Not Recovered/Not Resolved]
  - Insomnia [Not Recovered/Not Resolved]
  - Incorrect route of product administration [Not Recovered/Not Resolved]

NARRATIVE: CASE EVENT DATE: 2021
